FAERS Safety Report 5721946-8 (Version None)
Quarter: 2008Q2

REPORT INFORMATION
  Report Type: 
  Country: None (occurrence: None)
  Receive Date: 20080429
  Receipt Date: 20080421
  Transmission Date: 20081010
  Serious: Yes (Other)
  Sender: FDA-Public Use
  Company Number: US-PFIZER INC-2008035034

PATIENT
  Age: 75 Year
  Sex: Male

DRUGS (1)
  1. NORVASC [Suspect]

REACTIONS (4)
  - COLONOSCOPY [None]
  - CONJUNCTIVITIS [None]
  - FAECAL INCONTINENCE [None]
  - SUPERFICIAL INJURY OF EYE [None]
